FAERS Safety Report 9828890 (Version 1)
Quarter: 2014Q1

REPORT INFORMATION
  Report Type: Report from Study
  Country: US (occurrence: US)
  Receive Date: 20140118
  Receipt Date: 20140118
  Transmission Date: 20141002
  Serious: Yes (Other)
  Sender: FDA-Public Use
  Company Number: US-ABBVIE-14P-163-1187753-00

PATIENT
  Age: 47 Year
  Sex: Female
  Weight: 65.83 kg

DRUGS (4)
  1. HUMIRA [Suspect]
     Indication: COLITIS ULCERATIVE
     Dates: start: 20131217, end: 20131217
  2. HUMIRA [Suspect]
     Dates: start: 20131230, end: 20131230
  3. LOMOTIL [Suspect]
     Indication: COLITIS ULCERATIVE
  4. PAXIL [Concomitant]
     Indication: ANXIETY

REACTIONS (2)
  - Vision blurred [Not Recovered/Not Resolved]
  - Dyspnoea [Recovered/Resolved]
